FAERS Safety Report 10525352 (Version 3)
Quarter: 2014Q4

REPORT INFORMATION
  Report Type: Spontaneous
  Country: BR (occurrence: BR)
  Receive Date: 20141017
  Receipt Date: 20141023
  Transmission Date: 20150528
  Serious: Yes (Death, Hospitalization, Other)
  Sender: FDA-Public Use
  Company Number: BR-MERCK-1408BRA015040

PATIENT
  Sex: Female

DRUGS (3)
  1. INSULIN [Concomitant]
     Active Substance: INSULIN NOS
     Indication: DIABETES MELLITUS
     Dosage: UNK, UNKNOWN
  2. PEGINTRON [Suspect]
     Active Substance: PEGINTERFERON ALFA-2B
     Indication: HEPATITIS C
     Dosage: UNK, UNKNOWN
     Route: 058
     Dates: start: 20140716, end: 201409
  3. RIBAVIRIN (NON-MERCK) [Concomitant]
     Indication: HEPATITIS C
     Dosage: UNK, UNKNOWN
     Route: 048
     Dates: start: 20140716, end: 201409

REACTIONS (8)
  - Productive cough [Unknown]
  - Diabetes mellitus [Fatal]
  - Blood pressure increased [Unknown]
  - Acute respiratory failure [Fatal]
  - Cardiogenic shock [Fatal]
  - Malaise [Unknown]
  - Somnolence [Not Recovered/Not Resolved]
  - Congestive cardiomyopathy [Fatal]
